FAERS Safety Report 4762067-0 (Version None)
Quarter: 2005Q3

REPORT INFORMATION
  Report Type: 
  Country: None (occurrence: None)
  Receive Date: 20050831
  Receipt Date: 20050524
  Transmission Date: 20060218
  Serious: No
  Sender: FDA-Public Use
  Company Number: PHEH2005US05927

PATIENT
  Age: 87 Year
  Sex: Male

DRUGS (1)
  1. ENABLEX [Suspect]
     Indication: POLLAKIURIA
     Dosage: 15 MG, QD
     Dates: start: 20050523

REACTIONS (2)
  - CONSTIPATION [None]
  - DRY MOUTH [None]
